FAERS Safety Report 11117530 (Version 2)
Quarter: 2015Q2

REPORT INFORMATION
  Report Type: Spontaneous
  Country: IN (occurrence: IN)
  Receive Date: 20150517
  Receipt Date: 20150521
  Transmission Date: 20150821
  Serious: Yes (Other)
  Sender: FDA-Public Use
  Company Number: PHHY2015IN056573

PATIENT
  Age: 20 Year
  Sex: Male

DRUGS (1)
  1. OFLOXACIN. [Suspect]
     Active Substance: OFLOXACIN
     Indication: HORDEOLUM
     Route: 065

REACTIONS (8)
  - Skin lesion [Recovered/Resolved]
  - Conjunctivitis [Recovered/Resolved]
  - Genital erosion [Recovered/Resolved]
  - Blister [Recovered/Resolved]
  - Toxic epidermal necrolysis [Recovered/Resolved]
  - Gingival erosion [Recovered/Resolved]
  - Erythema [Recovered/Resolved]
  - Scab [Recovered/Resolved]
